FAERS Safety Report 6530188-8 (Version None)
Quarter: 2010Q1

REPORT INFORMATION
  Report Type: 
  Country: None (occurrence: None)
  Receive Date: 20100107
  Receipt Date: 20091228
  Transmission Date: 20100710
  Serious: Yes (Hospitalization, Other)
  Sender: FDA-Public Use
  Company Number: BR-SANOFI-AVENTIS-2009SA011714

PATIENT
  Sex: Female
  Weight: 70.5 kg

DRUGS (12)
  1. LANTUS [Suspect]
     Indication: TYPE 2 DIABETES MELLITUS
     Route: 058
     Dates: start: 20030101, end: 20090101
  2. LANTUS [Suspect]
     Dosage: 20 IU IN THE MORNING AND 28 IU AT NIGHT
     Route: 058
     Dates: start: 20090101
  3. OPTIPEN [Suspect]
  4. METFORMIN [Concomitant]
     Dosage: 3 TABS
     Route: 048
  5. ENALAPRIL [Concomitant]
     Dosage: 2 TABS
     Route: 048
  6. SIMVASTATIN [Concomitant]
     Route: 048
     Dates: start: 20080801
  7. CIPROFIBRATE [Concomitant]
     Route: 048
  8. ORAL ANTIDIABETICS [Concomitant]
     Dosage: 2 TABS DAILY
     Route: 048
  9. OMEPRAZOLE [Concomitant]
     Indication: GASTRIC DISORDER
     Route: 048
     Dates: start: 20070101
  10. CHLORTHALIDONE [Concomitant]
     Route: 048
  11. ATENOLOL [Concomitant]
     Route: 048
  12. ISOSORBIDE [Concomitant]
     Route: 048

REACTIONS (2)
  - BLOOD GLUCOSE FLUCTUATION [None]
  - CORONARY ARTERY OCCLUSION [None]
